FAERS Safety Report 5936269-1 (Version None)
Quarter: 2008Q4

REPORT INFORMATION
  Report Type: 
  Country: None (occurrence: None)
  Receive Date: 20081028
  Receipt Date: 20081015
  Transmission Date: 20090506
  Serious: Yes (Other)
  Sender: FDA-Public Use
  Company Number: 2008002536

PATIENT
  Age: 50 Year
  Sex: Female

DRUGS (1)
  1. TARCEVA [Suspect]
     Indication: NON-SMALL CELL LUNG CANCER
     Dosage: (150 MG,QD), ORAL
     Route: 048
     Dates: start: 20080902

REACTIONS (5)
  - BRAIN OEDEMA [None]
  - DIARRHOEA [None]
  - DIZZINESS [None]
  - METASTASES TO CENTRAL NERVOUS SYSTEM [None]
  - SENSORY LOSS [None]
